FAERS Safety Report 4799745-3 (Version None)
Quarter: 2005Q4

REPORT INFORMATION
  Report Type: 
  Country: None (occurrence: None)
  Receive Date: 20051011
  Receipt Date: 20051011
  Transmission Date: 20060501
  Serious: Yes (Hospitalization)
  Sender: FDA-Public Use
  Company Number: None

PATIENT
  Sex: Female
  Weight: 128.8216 kg

DRUGS (6)
  1. FLEET PHOSPHO-SODA [Suspect]
     Indication: COLONOSCOPY
     Dosage: X 1 DOSE IN AM
     Dates: start: 20050127
  2. FLEET PHOSPHO-SODA [Suspect]
     Indication: ENDOSCOPY
     Dosage: X 1 DOSE IN AM
     Dates: start: 20050127
  3. CITROMA [Suspect]
     Indication: COLONOSCOPY
     Dosage: 1 X DOSE IN AM
     Dates: start: 20050127
  4. CITROMA [Suspect]
     Indication: ENDOSCOPY
     Dosage: 1 X DOSE IN AM
     Dates: start: 20050127
  5. BP MEDS [Concomitant]
  6. ASPIRIN [Concomitant]

REACTIONS (2)
  - BLOOD PRESSURE DECREASED [None]
  - DIZZINESS [None]
